FAERS Safety Report 6159057-2 (Version None)
Quarter: 2009Q2

REPORT INFORMATION
  Report Type: 
  Country: None (occurrence: None)
  Receive Date: 20090415
  Receipt Date: 20090407
  Transmission Date: 20091009
  Serious: Yes (Hospitalization)
  Sender: FDA-Public Use
  Company Number: TRP_06085_2009

PATIENT
  Age: 63 Year
  Sex: Female

DRUGS (7)
  1. RIBASPHERE [Suspect]
     Indication: HEPATITIS C
     Dosage: (1000 )
     Dates: start: 20081229, end: 20090119
  2. PEG-INTRON [Suspect]
     Indication: HEPATITIS C
     Dosage: (120 ?G, SUBCUTANEOUS)
     Route: 058
     Dates: start: 20081229, end: 20090119
  3. EVISTA /01303201/ ) [Concomitant]
  4. NEURONTIN [Concomitant]
  5. BYSTOLIC [Concomitant]
  6. HYZAAR /01284801/ [Concomitant]
  7. SYNTHROID [Concomitant]

REACTIONS (2)
  - ORTHOSTATIC HYPOTENSION [None]
  - PANCYTOPENIA [None]
